FAERS Safety Report 6614257-X (Version None)
Quarter: 2010Q1

REPORT INFORMATION
  Report Type: 
  Country: None (occurrence: None)
  Receive Date: 20100303
  Receipt Date: 20100303
  Transmission Date: 20100710
  Serious: Yes (Disabling, Other)
  Sender: FDA-Public Use
  Company Number: None

PATIENT
  Sex: Female
  Weight: 79.3795 kg

DRUGS (2)
  1. METHADONE HCL [Suspect]
     Indication: FALL
     Dosage: 5MG 3XDAILY PO (TWO AND ONE HALF TO 3 YRS)
     Route: 048
     Dates: start: 20060401, end: 20090712
  2. METHADONE HCL [Suspect]
     Indication: PAIN
     Dosage: 5MG 3XDAILY PO (TWO AND ONE HALF TO 3 YRS)
     Route: 048
     Dates: start: 20060401, end: 20090712

REACTIONS (5)
  - COMPLEX REGIONAL PAIN SYNDROME [None]
  - INFECTION [None]
  - MASTICATION DISORDER [None]
  - TOOTH DISORDER [None]
  - TOOTH LOSS [None]
